FAERS Safety Report 4337712-4 (Version None)
Quarter: 2004Q2

REPORT INFORMATION
  Report Type: 
  Country: None (occurrence: None)
  Receive Date: 20040413
  Receipt Date: 20040316
  Transmission Date: 20050107
  Serious: Yes (Hospitalization)
  Sender: FDA-Public Use
  Company Number: BE-ROCHE-361698

PATIENT
  Age: 52 Year
  Sex: Male
  Weight: 72 kg

DRUGS (4)
  1. PEG-INTERFERON ALFA 2A (RO 25-8310) [Suspect]
     Indication: HEPATITIS C
     Route: 058
     Dates: start: 20031208, end: 20040315
  2. AMANTADINE HYDROCHLORIDE [Suspect]
     Indication: HEPATITIS C
     Route: 048
     Dates: start: 20031208, end: 20040315
  3. RIBAVIRIN [Suspect]
     Indication: HEPATITIS C
     Route: 048
     Dates: start: 20031208, end: 20040315
  4. DIAZEPAM [Concomitant]
     Indication: NERVOUSNESS
     Dosage: APR 2004: THE PATIENT WAS REPORTED TO BE TAKING 2.5MG DAILY.
     Dates: start: 20031015

REACTIONS (1)
  - EPILEPSY [None]
